FAERS Safety Report 10997529 (Version 1)
Quarter: 2015Q2

REPORT INFORMATION
  Report Type: Spontaneous
  Country: US (occurrence: US)
  Receive Date: 20150408
  Receipt Date: 20150408
  Transmission Date: 20150821
  Serious: No
  Sender: FDA-Public Use
  Company Number: US-BANPHARM-20142808

PATIENT
  Age: 22 Year
  Sex: Male
  Weight: 77.11 kg

DRUGS (3)
  1. ALEVE [Suspect]
     Active Substance: NAPROXEN SODIUM
     Indication: MUSCLE STRAIN
     Route: 048
  2. ACNE MEDICATION [Concomitant]
     Active Substance: UNSPECIFIED INGREDIENT
  3. TRIMETHOPRIM. [Concomitant]
     Active Substance: TRIMETHOPRIM

REACTIONS (2)
  - Drug effect incomplete [Unknown]
  - Incorrect dose administered [Unknown]

NARRATIVE: CASE EVENT DATE: 20140613
